FAERS Safety Report 4878626-0 (Version None)
Quarter: 2006Q1

REPORT INFORMATION
  Report Type: 
  Country: None (occurrence: None)
  Receive Date: 20060110
  Receipt Date: 20051229
  Transmission Date: 20060701
  Serious: Yes (Hospitalization)
  Sender: FDA-Public Use
  Company Number: US-2005-028097

PATIENT
  Age: 49 Year
  Sex: Female

DRUGS (1)
  1. BETASERON [Suspect]
     Indication: MULTIPLE SCLEROSIS
     Dosage: 8 MUI, EVERY 2D, SUBCUTANEOUS
     Route: 058
     Dates: start: 20001017

REACTIONS (2)
  - ANOREXIA [None]
  - ASTHENIA [None]
